FAERS Safety Report 5015595-7 (Version None)
Quarter: 2006Q2

REPORT INFORMATION
  Report Type: 
  Country: None (occurrence: None)
  Receive Date: 20060526
  Receipt Date: 20060522
  Transmission Date: 20061013
  Serious: Yes (Death)
  Sender: FDA-Public Use
  Company Number: OXER20060056

PATIENT
  Age: 50 Year
  Sex: Female
  Weight: 127.4608 kg

DRUGS (9)
  1. OXYCODONE ER  20MG ENDO [Suspect]
     Indication: PAIN
     Dosage: 20 MG BID PO
     Route: 048
     Dates: start: 20060316, end: 20060426
  2. OXYCODONE IR  5MG ETHEX [Suspect]
     Indication: BREAKTHROUGH PAIN
     Dosage: 5 MG PRN PO
     Route: 048
  3. PAROXETINE HCL [Concomitant]
  4. LORAZEPAM [Concomitant]
  5. HYOSCYAMINE [Concomitant]
  6. NITROFURANTOIN [Concomitant]
  7. HYDROCODONE WITH APAP [Concomitant]
  8. SKELAXIN [Concomitant]
  9. METOPROLOL [Concomitant]

REACTIONS (3)
  - CARDIOMEGALY [None]
  - DRUG TOXICITY [None]
  - HEPATIC STEATOSIS [None]
